FAERS Safety Report 8480004-2 (Version None)
Quarter: 2012Q2

REPORT INFORMATION
  Report Type: 
  Country: None (occurrence: None)
  Receive Date: 20120629
  Receipt Date: 20120620
  Transmission Date: 20120825
  Serious: Yes (Hospitalization, Other)
  Sender: FDA-Public Use
  Company Number: JP-ALLERGAN-1114154US

PATIENT
  Age: 66 Year
  Sex: Male

DRUGS (3)
  1. LUMIGAN [Suspect]
     Indication: OPEN ANGLE GLAUCOMA
     Dosage: 1 GTT, QD
     Route: 047
     Dates: start: 20100201, end: 20110516
  2. TIMOPTIC-XE [Concomitant]
     Dosage: UNK
     Dates: start: 20090316, end: 20091019
  3. AZOPT [Concomitant]
     Dosage: UNK
     Dates: start: 20091228

REACTIONS (4)
  - EYE PAIN [None]
  - VISUAL FIELD DEFECT [None]
  - BLEPHARAL PIGMENTATION [None]
  - MACULAR HOLE [None]
